FAERS Safety Report 8209232-8 (Version None)
Quarter: 2012Q1

REPORT INFORMATION
  Report Type: 
  Country: None (occurrence: None)
  Receive Date: 20120314
  Receipt Date: 20120306
  Transmission Date: 20120608
  Serious: Yes (Other)
  Sender: FDA-Public Use
  Company Number: PHHY2012JP019561

PATIENT
  Age: 72 Year
  Sex: Female

DRUGS (3)
  1. CARBOPLATIN [Suspect]
     Dates: start: 20090601
  2. DOCETAXEL [Concomitant]
  3. PACLITAXEL [Suspect]
     Dosage: 180 MG/M2, UNK
     Dates: start: 20090601

REACTIONS (15)
  - ALCOHOL INTOLERANCE [None]
  - FATIGUE [None]
  - ANAEMIA [None]
  - VOMITING [None]
  - MYALGIA [None]
  - NAUSEA [None]
  - SOMNOLENCE [None]
  - NEOPLASM MALIGNANT [None]
  - ARTHRALGIA [None]
  - THROMBOCYTOPENIA [None]
  - HOT FLUSH [None]
  - NEUROPATHY PERIPHERAL [None]
  - DIZZINESS [None]
  - LEUKOPENIA [None]
  - DECREASED APPETITE [None]
